FAERS Safety Report 10611969 (Version 11)
Quarter: 2021Q3

REPORT INFORMATION
  Report Type: Spontaneous
  Country: US (occurrence: US)
  Receive Date: 20141126
  Receipt Date: 20210827
  Transmission Date: 20211014
  Serious: Yes (Death, Life-Threatening, Hospitalization, Other)
  Sender: FDA-Public Use
  Company Number: US-009507513-1411USA012621

PATIENT
  Sex: Male
  Weight: 74.83 kg

DRUGS (3)
  1. JANUMET [Suspect]
     Active Substance: METFORMIN HYDROCHLORIDE\SITAGLIPTIN PHOSPHATE
     Dosage: 50/1000 MG BID
     Route: 048
     Dates: start: 20071001, end: 20080430
  2. JANUMET [Suspect]
     Active Substance: METFORMIN HYDROCHLORIDE\SITAGLIPTIN PHOSPHATE
     Indication: TYPE 2 DIABETES MELLITUS
     Dosage: 50/1000 MG, BID
     Route: 048
     Dates: start: 20111226, end: 20121119
  3. JANUMET [Suspect]
     Active Substance: METFORMIN HYDROCHLORIDE\SITAGLIPTIN PHOSPHATE
     Dosage: 50/500
     Route: 048

REACTIONS (28)
  - Metastases to lymph nodes [Unknown]
  - Hepatic failure [Unknown]
  - Pneumonia [Unknown]
  - Large intestinal polypectomy [Unknown]
  - Ascites [Unknown]
  - Deep vein thrombosis [Unknown]
  - Hypocalcaemia [Unknown]
  - Leukocytosis [Unknown]
  - Cardiac arrest [Unknown]
  - Respiratory arrest [Unknown]
  - Cardiopulmonary failure [Unknown]
  - Acute kidney injury [Unknown]
  - Vena cava filter insertion [Unknown]
  - Infection [Unknown]
  - Pruritus [Unknown]
  - Metastases to lung [Unknown]
  - Hyperkalaemia [Unknown]
  - Oedema [Unknown]
  - Tachycardia [Unknown]
  - Hyponatraemia [Unknown]
  - Metastases to liver [Unknown]
  - International normalised ratio increased [Unknown]
  - Pancreatic carcinoma [Fatal]
  - Hyperbilirubinaemia [Unknown]
  - Pulmonary embolism [Unknown]
  - Hypotension [Unknown]
  - Hypoglycaemia [Unknown]
  - Arthralgia [Unknown]

NARRATIVE: CASE EVENT DATE: 2010
